FAERS Safety Report 8785643 (Version 3)
Quarter: 2012Q4

REPORT INFORMATION
  Report Type: 
  Country: US (occurrence: US)
  Receive Date: 20120914
  Receipt Date: 20121214
  Transmission Date: 20130627
  Serious: Yes (Other)
  Sender: FDA-Public Use
  Company Number: US-VERTEX PHARMACEUTICAL INC.-2012-020817

PATIENT
  Sex: Male

DRUGS (6)
  1. INCIVEK [Suspect]
     Indication: HEPATITIS C
     Dosage: UNK
     Route: 048
     Dates: start: 20120811
  2. RIBAVIRIN [Suspect]
     Indication: HEPATITIS C
     Dosage: UNK
     Dates: start: 20120811
  3. PEGASYS [Suspect]
     Indication: HEPATITIS C
     Dosage: UNK
     Dates: start: 20120811
  4. HYDROXYCHLOROQUINE [Concomitant]
     Dosage: 200 mg tab
  5. LORTAB                             /00607101/ [Concomitant]
     Dosage: 5 mg
  6. CLARITIN                           /00413701/ [Concomitant]

REACTIONS (1)
  - Convulsion [Recovered/Resolved]
